FAERS Safety Report 24143901 (Version 1)
Quarter: 2024Q3

REPORT INFORMATION
  Report Type: Report from Study
  Country: IE (occurrence: IE)
  Receive Date: 20240727
  Receipt Date: 20240727
  Transmission Date: 20241016
  Serious: Yes (Other)
  Sender: TEVA
  Company Number: IE-TEVA-VS-3223266

PATIENT
  Age: 54 Year
  Sex: Female

DRUGS (1)
  1. COPAXONE [Suspect]
     Active Substance: GLATIRAMER ACETATE
     Indication: Multiple sclerosis
     Dosage: DOSAGE: 40 MG/ML
     Route: 065
     Dates: start: 20171114

REACTIONS (1)
  - Trigeminal neuralgia [Recovering/Resolving]

NARRATIVE: CASE EVENT DATE: 20190407
